FAERS Safety Report 8917911 (Version 2)
Quarter: 2012Q4

REPORT INFORMATION
  Report Type: 
  Country: GB (occurrence: GB)
  Receive Date: 20121120
  Receipt Date: 20121220
  Transmission Date: 20130627
  Serious: Yes (Death, Hospitalization, Other)
  Sender: FDA-Public Use
  Company Number: GB-B.I. PHARMACEUTICALS,INC./RIDGEFIELD-2012-UK-01780UK

PATIENT
  Age: 87 Year
  Sex: Male

DRUGS (6)
  1. SPIRIVA [Suspect]
     Indication: CHRONIC OBSTRUCTIVE PULMONARY DISEASE
     Dates: end: 20121108
  2. SPIRIVA RESPIMAT [Suspect]
     Indication: CHRONIC OBSTRUCTIVE PULMONARY DISEASE
     Dates: start: 20121108
  3. VENTOLIN EVOHALER [Concomitant]
  4. SYMBICORT 400/12 [Concomitant]
  5. FOLIC ACID [Concomitant]
  6. LOPERAMIDE [Concomitant]

REACTIONS (6)
  - Cardiac arrest [Fatal]
  - Fall [Unknown]
  - Depressed level of consciousness [Unknown]
  - Malaise [Unknown]
  - Malaise [Unknown]
  - Incorrect route of drug administration [Unknown]
